FAERS Safety Report 4875700-X (Version None)
Quarter: 2006Q1

REPORT INFORMATION
  Report Type: 
  Country: None (occurrence: None)
  Receive Date: 20060105
  Receipt Date: 20051228
  Transmission Date: 20060701
  Serious: Yes (Hospitalization, Other)
  Sender: FDA-Public Use
  Company Number: USA-2005-0021908

PATIENT
  Age: 62 Year
  Sex: Female

DRUGS (5)
  1. CEFDITOREN PIVOXIL [Suspect]
     Indication: ACUTE TONSILLITIS
     Dosage: 100 MG, DAILY, ORAL
     Route: 048
     Dates: start: 20051122, end: 20051122
  2. POLARAMINE [Concomitant]
  3. LEBENIN (STREPTOCOCCUS FAECALIS, LACTOBACILLUS BIFIDUS, LYOPHILIZED, L [Concomitant]
  4. MARZULENE (SODIUM GUALENATE) [Concomitant]
  5. MUCOSOLVAN (LASOLVAN) (AMBROXOL HYDROCHLORIDE) [Concomitant]

REACTIONS (1)
  - ANAPHYLACTIC SHOCK [None]
